FAERS Safety Report 17570702 (Version 1)
Quarter: 2020Q1

REPORT INFORMATION
  Report Type: Report from Study
  Country: DE (occurrence: DE)
  Receive Date: 20200323
  Receipt Date: 20200323
  Transmission Date: 20200409
  Serious: Yes (Hospitalization, Other)
  Sender: FDA-Public Use
  Company Number: NVSC2019DE047104

PATIENT
  Age: 11 Month
  Sex: Male
  Weight: 6.5 kg

DRUGS (3)
  1. PREDNISOLONE. [Concomitant]
     Active Substance: PREDNISOLONE
     Indication: PRODUCT USED FOR UNKNOWN INDICATION
     Dosage: UNK
     Route: 065
  2. AVXS-101 [Suspect]
     Active Substance: ONASEMNOGENE ABEPARVOVEC
     Indication: SPINAL MUSCULAR ATROPHY
     Dosage: 2X5.5 ML, 3X8.3 ML
     Route: 042
     Dates: start: 20191113
  3. PREDNISOLONE. [Concomitant]
     Active Substance: PREDNISOLONE
     Dosage: 2 MG/KG
     Route: 065
     Dates: start: 20191119

REACTIONS (7)
  - Liver function test increased [Recovered/Resolved]
  - Blood creatine phosphokinase MB increased [Unknown]
  - Transaminases increased [Unknown]
  - Blood creatine phosphokinase increased [Unknown]
  - Troponin T increased [Not Recovered/Not Resolved]
  - Hypertension [Not Recovered/Not Resolved]
  - Troponin I increased [Not Recovered/Not Resolved]

NARRATIVE: CASE EVENT DATE: 20191119
